FAERS Safety Report 24119634 (Version 1)
Quarter: 2024Q3

REPORT INFORMATION
  Report Type: Spontaneous
  Country: US (occurrence: None)
  Receive Date: 20240718
  Receipt Date: 20240718
  Transmission Date: 20241017
  Serious: Yes (Other)
  Sender: Public
  Company Number: None

PATIENT
  Age: 47 Year
  Weight: 177 kg

DRUGS (1)
  1. CABENUVA [Suspect]
     Active Substance: CABOTEGRAVIR\RILPIVIRINE
     Indication: HIV infection
     Dosage: OTHER FREQUENCY : EVERY 2 MONTHS;?
     Route: 030
     Dates: start: 20240711, end: 20240711

REACTIONS (3)
  - Rash [None]
  - Urticaria [None]
  - Injection related reaction [None]

NARRATIVE: CASE EVENT DATE: 20240711
